FAERS Safety Report 9916835 (Version 1)
Quarter: 2014Q1

REPORT INFORMATION
  Report Type: Spontaneous
  Country: US (occurrence: US)
  Receive Date: 20140221
  Receipt Date: 20140221
  Transmission Date: 20141002
  Serious: No
  Sender: FDA-Public Use
  Company Number: US-MYLANLABS-2013S1002975

PATIENT
  Age: 54 Year
  Sex: Female
  Weight: 63.5 kg

DRUGS (9)
  1. SERTRALINE TABLETS [Suspect]
     Indication: ANXIETY
     Route: 048
     Dates: start: 201212
  2. RISPERIDONE [Concomitant]
     Indication: ANXIETY
     Route: 048
  3. CELEBREX [Concomitant]
     Indication: ARTHRALGIA
     Route: 048
  4. PLAVIX [Concomitant]
     Indication: STENT PLACEMENT
     Route: 048
     Dates: start: 201210
  5. TOPROL [Concomitant]
     Indication: ARRHYTHMIA
     Route: 048
  6. ASA [Concomitant]
     Route: 048
     Dates: start: 201210
  7. TRIAMTERENE AND HYDROCHLOROTHIAZIDE [Concomitant]
     Indication: BLOOD PRESSURE INCREASED
     Dosage: 37.5/25MG
     Route: 048
  8. CLONAZEPAM [Concomitant]
     Indication: RESTLESS LEGS SYNDROME
     Dosage: USING THE 0.5MG TABLET
     Route: 048
     Dates: start: 2010
  9. ESTRADIOL [Concomitant]
     Indication: MENOPAUSE
     Route: 048
     Dates: start: 2012

REACTIONS (2)
  - Drug effect decreased [Not Recovered/Not Resolved]
  - Anxiety [Not Recovered/Not Resolved]
